FAERS Safety Report 8483393-8 (Version None)
Quarter: 2012Q3

REPORT INFORMATION
  Report Type: 
  Country: None (occurrence: None)
  Receive Date: 20120702
  Receipt Date: 20120620
  Transmission Date: 20120928
  Serious: Yes (Death)
  Sender: FDA-Public Use
  Company Number: US-CELGENEUS-163-21880-12063370

PATIENT
  Sex: Male
  Weight: 84.353 kg

DRUGS (20)
  1. REVLIMID [Suspect]
     Indication: MULTIPLE MYELOMA
     Dosage: 25 MILLIGRAM
     Route: 048
     Dates: start: 20101003
  2. FINASTERIDE [Concomitant]
     Dosage: 5 MILLIGRAM
     Route: 048
  3. MAGNESIUM OXIDE [Concomitant]
     Dosage: 800 MILLIGRAM
     Route: 048
  4. OMEPRAZOLE [Concomitant]
     Dosage: 40 MILLIGRAM
     Route: 048
  5. HYDROCODONE [Concomitant]
     Indication: PAIN
     Dosage: 5/500
     Route: 065
  6. TAMSULOSIN HCL [Concomitant]
     Dosage: .4 MILLIGRAM
     Route: 048
  7. TRAZODONE HCL [Concomitant]
     Dosage: 100 MILLIGRAM
     Route: 048
  8. VENLAFAXINE [Concomitant]
     Indication: DEPRESSION
     Dosage: 150 MILLIGRAM
     Route: 048
  9. MIRALAX [Concomitant]
     Dosage: 8.5 GRAM
     Route: 048
  10. OXYCONTIN [Concomitant]
     Indication: PAIN MANAGEMENT
     Dosage: 40 MILLIGRAM
     Route: 048
  11. DECADRON [Concomitant]
     Route: 065
  12. MULTI-VITAMINS [Concomitant]
     Dosage: 1
     Route: 048
  13. TRAZODONE HCL [Concomitant]
     Dosage: 50 MILLIGRAM
     Route: 065
  14. IBUPROFEN (ADVIL) [Concomitant]
     Dosage: 100 MILLIGRAM
     Route: 048
  15. ASPIRIN [Concomitant]
     Dosage: 325 MILLIGRAM
     Route: 048
  16. OXYCONTIN [Concomitant]
     Dosage: 10 MILLIGRAM
     Route: 065
  17. PROCHLORPERAZINE [Concomitant]
     Indication: NAUSEA
     Dosage: 10 MILLIGRAM
     Route: 048
  18. MIRALAX [Concomitant]
     Route: 065
  19. CYTOXAN [Concomitant]
     Route: 065
  20. RED BLOOD CELLS [Concomitant]
     Dosage: 2 IU (INTERNATIONAL UNIT)
     Route: 065
     Dates: start: 20120101

REACTIONS (1)
  - MULTIPLE MYELOMA [None]
